FAERS Safety Report 12403613 (Version 2)
Quarter: 2016Q2

REPORT INFORMATION
  Report Type: Spontaneous
  Country: US (occurrence: US)
  Receive Date: 20160525
  Receipt Date: 20160602
  Transmission Date: 20160815
  Serious: No
  Sender: FDA-Public Use
  Company Number: US-ASTRAZENECA-2016SE54816

PATIENT
  Age: 45 Year
  Sex: Male
  Weight: 88.5 kg

DRUGS (6)
  1. HYCOSAMINE [Concomitant]
     Indication: ULCER
     Route: 060
     Dates: start: 2004
  2. NEXIUM [Suspect]
     Active Substance: ESOMEPRAZOLE MAGNESIUM
     Indication: GASTROOESOPHAGEAL REFLUX DISEASE
     Route: 048
     Dates: start: 2004, end: 2006
  3. PRILOSEC [Suspect]
     Active Substance: OMEPRAZOLE MAGNESIUM
     Indication: GASTROOESOPHAGEAL REFLUX DISEASE
     Route: 048
  4. DICYCLOMINE [Concomitant]
     Active Substance: DICYCLOMINE HYDROCHLORIDE
     Indication: ULCER
     Route: 048
     Dates: start: 2004
  5. AMITRYPTYLINE [Concomitant]
     Active Substance: AMITRIPTYLINE
     Indication: DEPRESSION
     Route: 048
  6. NEXIUM 24HR [Suspect]
     Active Substance: ESOMEPRAZOLE MAGNESIUM
     Indication: GASTROOESOPHAGEAL REFLUX DISEASE
     Route: 048

REACTIONS (9)
  - Insomnia [Unknown]
  - Pain [Unknown]
  - Eye disorder [Unknown]
  - Visual impairment [Unknown]
  - Depression [Unknown]
  - Eating disorder [Unknown]
  - Constipation [Unknown]
  - Activities of daily living impaired [Unknown]
  - Helicobacter infection [Unknown]

NARRATIVE: CASE EVENT DATE: 2010
